FAERS Safety Report 19283637 (Version 1)
Quarter: 2021Q2

REPORT INFORMATION
  Report Type: Spontaneous
  Country: US (occurrence: US)
  Receive Date: 20210521
  Receipt Date: 20210521
  Transmission Date: 20210717
  Serious: No
  Sender: FDA-Public Use
  Company Number: None

PATIENT
  Age: 81 Year
  Sex: Male

DRUGS (1)
  1. CEFTAZIDIME (CEFTAZIDIME 2M/VIL INJ) [Suspect]
     Active Substance: CEFTAZIDIME
     Indication: SEPTIC SHOCK
     Dosage: ?          OTHER FREQUENCY:UNKNOWN;OTHER ROUTE:IV?
     Route: 042
     Dates: start: 20210410, end: 20210412

REACTIONS (3)
  - Hypotension [None]
  - Rash [None]
  - Tachycardia [None]

NARRATIVE: CASE EVENT DATE: 20210412
